FAERS Safety Report 10724468 (Version 1)
Quarter: 2015Q1

REPORT INFORMATION
  Report Type: Spontaneous
  Country: US (occurrence: None)
  Receive Date: 20150116
  Receipt Date: 20150116
  Transmission Date: 20150721
  Serious: Yes (Disabling)
  Sender: FDA-Public Use
  Company Number: None

PATIENT
  Age: 59 Year
  Sex: Male
  Weight: 76.2 kg

DRUGS (11)
  1. CLINDAMYCIN [Suspect]
     Active Substance: CLINDAMYCIN\CLINDAMYCIN PHOSPHATE
     Indication: POSTOPERATIVE CARE
     Dosage: 1 PILL  TID BY MOUTH WITH WATER
     Route: 048
     Dates: start: 20141217, end: 20141224
  2. LORATIDINE [Concomitant]
     Active Substance: LORATADINE
  3. VITAMIN D [Concomitant]
     Active Substance: CHOLECALCIFEROL
  4. RED YEAST RICE [Concomitant]
     Active Substance: DIETARY SUPPLEMENT
  5. SAW PALMETO [Concomitant]
  6. VITAMIN C [Concomitant]
     Active Substance: ASCORBIC ACID
  7. MULTI VITAMIN [Concomitant]
     Active Substance: VITAMINS
  8. CLINDAMYCIN [Suspect]
     Active Substance: CLINDAMYCIN\CLINDAMYCIN PHOSPHATE
     Indication: INFECTION PROPHYLAXIS
     Dosage: 1 PILL  TID BY MOUTH WITH WATER
     Route: 048
     Dates: start: 20141217, end: 20141224
  9. CO-Q 10 [Concomitant]
  10. LUTEIN [Concomitant]
     Active Substance: LUTEIN
  11. LOVAZA [Concomitant]
     Active Substance: OMEGA-3-ACID ETHYL ESTERS

REACTIONS (4)
  - Oesophagitis [None]
  - Odynophagia [None]
  - Gastrooesophageal reflux disease [None]
  - Middle insomnia [None]

NARRATIVE: CASE EVENT DATE: 20141224
